FAERS Safety Report 7129312-8 (Version None)
Quarter: 2010Q4

REPORT INFORMATION
  Report Type: 
  Country: None (occurrence: None)
  Receive Date: 20101130
  Receipt Date: 20101122
  Transmission Date: 20110411
  Serious: Yes (Other)
  Sender: FDA-Public Use
  Company Number: US-PFIZER INC-2010154778

PATIENT
  Sex: Female
  Weight: 54.422 kg

DRUGS (6)
  1. TOVIAZ [Suspect]
     Indication: HYPERTONIC BLADDER
     Dosage: 4 MG, 1X/DAY
     Route: 048
     Dates: start: 20101101, end: 20101114
  2. TOVIAZ [Interacting]
     Dosage: 8 MG, 1X/DAY
     Dates: start: 20101115
  3. FENTANYL [Interacting]
     Indication: MUSCULOSKELETAL DISCOMFORT
     Dosage: 25 MG, ONCE EVERY THREE DAYS
     Route: 062
  4. VALIUM [Concomitant]
     Indication: SLEEP DISORDER
     Dosage: 1.5 MG, 1X/DAY
     Route: 048
  5. SIMVASTATIN [Concomitant]
     Indication: BLOOD CHOLESTEROL INCREASED
     Dosage: 20 MG, 1X/DAY
     Route: 048
  6. BENICAR [Concomitant]
     Indication: HYPERTENSION
     Dosage: 20 MG, 1X/DAY
     Route: 048

REACTIONS (5)
  - CHEST PAIN [None]
  - CONDITION AGGRAVATED [None]
  - DRUG INTERACTION [None]
  - MALAISE [None]
  - SOMNOLENCE [None]
